FAERS Safety Report 19437270 (Version 1)
Quarter: 2021Q2

REPORT INFORMATION
  Report Type: Spontaneous
  Country: US (occurrence: US)
  Receive Date: 20210618
  Receipt Date: 20210618
  Transmission Date: 20210717
  Serious: No
  Sender: FDA-Public Use
  Company Number: US-BIOHAVEN PHARMACEUTICALS-2021BHV00309

PATIENT
  Age: 61 Year
  Sex: Female
  Weight: 52.61 kg

DRUGS (6)
  1. UNSPECIFIED OTHER MEDICATIONS [Concomitant]
     Active Substance: UNSPECIFIED INGREDIENT
  2. OMEPRAZOLE. [Concomitant]
     Active Substance: OMEPRAZOLE
  3. ATORVASTATIN [Concomitant]
     Active Substance: ATORVASTATIN
  4. METOPROLOL. [Concomitant]
     Active Substance: METOPROLOL
  5. UNSPECIIFED CHOLESTEROL MEDICATION [Concomitant]
  6. NURTEC ODT [Suspect]
     Active Substance: RIMEGEPANT SULFATE
     Indication: MIGRAINE
     Dosage: 75 MG, ONCE
     Route: 048
     Dates: start: 202101, end: 202101

REACTIONS (8)
  - Hallucination [Recovered/Resolved]
  - Nausea [Recovered/Resolved]
  - Gait disturbance [Recovered/Resolved]
  - Vomiting [Recovered/Resolved]
  - Illness [Recovered/Resolved]
  - Aphasia [Recovered/Resolved]
  - Palpitations [Recovered/Resolved]
  - Vertigo [Recovered/Resolved]

NARRATIVE: CASE EVENT DATE: 202101
